FAERS Safety Report 17518366 (Version 1)
Quarter: 2020Q1

REPORT INFORMATION
  Report Type: Spontaneous
  Country: IT (occurrence: IT)
  Receive Date: 20200310
  Receipt Date: 20200310
  Transmission Date: 20200409
  Serious: Yes (Other)
  Sender: FDA-Public Use
  Company Number: IT-B.I. PHARMACEUTICALS,INC./RIDGEFIELD-2019-12-120965

PATIENT
  Age: 72 Year
  Sex: Female

DRUGS (1)
  1. MICARDIS [Suspect]
     Active Substance: TELMISARTAN
     Indication: HYPERTENSION
     Route: 048
     Dates: start: 20181013, end: 20181029

REACTIONS (2)
  - Hypertensive crisis [Recovering/Resolving]
  - Therapeutic product ineffective [Recovering/Resolving]

NARRATIVE: CASE EVENT DATE: 20181029
